FAERS Safety Report 17056566 (Version 4)
Quarter: 2020Q3

REPORT INFORMATION
  Report Type: Spontaneous
  Country: US (occurrence: US)
  Receive Date: 20191121
  Receipt Date: 20200811
  Transmission Date: 20201102
  Serious: No
  Sender: FDA-Public Use
  Company Number: US-BIOGEN-2019BI00806772

PATIENT
  Age: 48 Year
  Sex: Female

DRUGS (4)
  1. TECFIDERA [Suspect]
     Active Substance: DIMETHYL FUMARATE
     Indication: MULTIPLE SCLEROSIS
     Dosage: TOOK THIS DOSE FOR THREE WEEKS ?STARTING DOSE
     Route: 065
     Dates: start: 20191106
  2. TECFIDERA [Suspect]
     Active Substance: DIMETHYL FUMARATE
     Dosage: MAINTENANCE DOSE
     Route: 048
  3. ASA 109?MS?406 [Concomitant]
     Indication: ROSACEA
     Route: 065
  4. CYMBALTA [Concomitant]
     Active Substance: DULOXETINE HYDROCHLORIDE
     Indication: DEPRESSION
     Route: 065

REACTIONS (5)
  - Rash [Not Recovered/Not Resolved]
  - Diarrhoea [Unknown]
  - Flushing [Not Recovered/Not Resolved]
  - Dyspepsia [Not Recovered/Not Resolved]
  - Constipation [Unknown]

NARRATIVE: CASE EVENT DATE: 20191114
